FAERS Safety Report 11751588 (Version 4)
Quarter: 2016Q2

REPORT INFORMATION
  Report Type: Spontaneous
  Country: US (occurrence: US)
  Receive Date: 20151118
  Receipt Date: 20160526
  Transmission Date: 20160815
  Serious: No
  Sender: FDA-Public Use
  Company Number: US-TEVA-608954USA

PATIENT
  Sex: Female

DRUGS (2)
  1. COPAXONE [Suspect]
     Active Substance: GLATIRAMER ACETATE
     Indication: MULTIPLE SCLEROSIS
     Route: 065
     Dates: start: 201401
  2. MENEST [Concomitant]
     Active Substance: ESTROGENS, ESTERIFIED
     Route: 065

REACTIONS (6)
  - Pain [Unknown]
  - Muscle spasms [Unknown]
  - Vibratory sense increased [Unknown]
  - Injection site pain [Unknown]
  - Injection site irritation [Unknown]
  - Radiculopathy [Unknown]

NARRATIVE: CASE EVENT DATE: 2015
